FAERS Safety Report 6349485-4 (Version None)
Quarter: 2009Q3

REPORT INFORMATION
  Report Type: 
  Country: None (occurrence: None)
  Receive Date: 20090911
  Receipt Date: 20090901
  Transmission Date: 20100115
  Serious: Yes (Other)
  Sender: FDA-Public Use
  Company Number: US-PFIZER INC-2009263502

PATIENT
  Sex: Female
  Weight: 108.84 kg

DRUGS (3)
  1. CELEBREX [Suspect]
     Indication: OSTEOARTHRITIS
     Dates: start: 20090801, end: 20090830
  2. CELEBREX [Suspect]
     Indication: TENDONITIS
  3. PROTONIX [Concomitant]

REACTIONS (5)
  - ANXIETY [None]
  - ASTHMA [None]
  - DIZZINESS [None]
  - DYSPHAGIA [None]
  - THROAT TIGHTNESS [None]
